FAERS Safety Report 10012814 (Version 3)
Quarter: 2014Q2

REPORT INFORMATION
  Report Type: Report from Study
  Country: IT (occurrence: IT)
  Receive Date: 20140314
  Receipt Date: 20140522
  Transmission Date: 20141212
  Serious: Yes (Hospitalization)
  Sender: FDA-Public Use
  Company Number: IT-ASTRAZENECA-2014SE17132

PATIENT
  Age: 19639 Day
  Sex: Female

DRUGS (41)
  1. VANDETANIB [Suspect]
     Indication: MEDULLARY THYROID CANCER
     Route: 048
     Dates: start: 20121220, end: 20130528
  2. VANDETANIB [Suspect]
     Indication: MEDULLARY THYROID CANCER
     Route: 048
     Dates: start: 20130618, end: 20131223
  3. VANDETANIB [Suspect]
     Indication: MEDULLARY THYROID CANCER
     Route: 048
     Dates: start: 20140106, end: 20140210
  4. VANDETANIB [Suspect]
     Indication: MEDULLARY THYROID CANCER
     Route: 048
     Dates: start: 20140211, end: 20140307
  5. LOPERAMIDE [Concomitant]
     Indication: DIARRHOEA
     Dosage: 2 MG DAILY IN THREE TIMES FREQUENCY
     Route: 048
     Dates: end: 20130123
  6. LOPERAMIDE [Concomitant]
     Indication: DIARRHOEA
     Route: 048
     Dates: end: 20130528
  7. LOPERAMIDE [Concomitant]
     Indication: DIARRHOEA
     Route: 048
     Dates: start: 20130124, end: 20130528
  8. LOPERAMIDE [Concomitant]
     Indication: DIARRHOEA
     Route: 048
     Dates: start: 20140211
  9. CALCIUM [Concomitant]
     Indication: HYPOPARATHYROIDISM
     Route: 048
     Dates: end: 20130115
  10. CALCIUM [Concomitant]
     Indication: HYPOPARATHYROIDISM
     Route: 048
     Dates: start: 20130116, end: 20130528
  11. CALCIUM [Concomitant]
     Indication: HYPOPARATHYROIDISM
     Route: 048
     Dates: start: 20130530, end: 20130602
  12. CALCIUM [Concomitant]
     Indication: HYPOPARATHYROIDISM
     Route: 048
     Dates: start: 20130603, end: 20130610
  13. CALCIUM [Concomitant]
     Indication: HYPOPARATHYROIDISM
     Route: 048
     Dates: start: 20130611, end: 20130613
  14. CALCIUM [Concomitant]
     Indication: HYPOPARATHYROIDISM
     Route: 048
     Dates: start: 20130614, end: 20130617
  15. CALCIUM [Concomitant]
     Indication: HYPOPARATHYROIDISM
     Dosage: 1 G DAILY IN THREE TIMES FREQUENCY
     Route: 048
     Dates: start: 20130618, end: 20130930
  16. CALCIUM [Concomitant]
     Indication: HYPOPARATHYROIDISM
     Route: 048
     Dates: start: 20131001
  17. CALCIUM [Concomitant]
     Indication: HYPOPARATHYROIDISM
     Route: 042
     Dates: start: 20140307, end: 20140313
  18. INDERAL [Concomitant]
     Indication: SINUS TACHYCARDIA
     Route: 048
     Dates: start: 20130124, end: 20130528
  19. INDERAL [Concomitant]
     Indication: SINUS TACHYCARDIA
     Route: 048
     Dates: start: 20130607, end: 20130610
  20. INDERAL [Concomitant]
     Indication: SINUS TACHYCARDIA
     Route: 048
     Dates: start: 20130611, end: 20130614
  21. INDERAL [Concomitant]
     Indication: SINUS TACHYCARDIA
     Route: 048
     Dates: start: 20130823
  22. MAG 2 [Concomitant]
     Indication: HYPOMAGNESAEMIA
     Route: 048
     Dates: start: 20130215, end: 20130528
  23. MAG 2 [Concomitant]
     Indication: HYPOMAGNESAEMIA
     Route: 048
     Dates: start: 20130618, end: 20130930
  24. MAG 2 [Concomitant]
     Indication: HYPOMAGNESAEMIA
     Route: 048
     Dates: start: 20131121
  25. QUESTRAN [Concomitant]
     Indication: DIARRHOEA
     Route: 048
     Dates: start: 20130520, end: 20130528
  26. QUESTRAN [Concomitant]
     Indication: DIARRHOEA
     Route: 048
     Dates: start: 20140211
  27. TIROSINT [Concomitant]
     Indication: HYPOTHYROIDISM
     Route: 002
     Dates: start: 20130531, end: 20130613
  28. TIROSINT [Concomitant]
     Indication: HYPOTHYROIDISM
     Route: 002
     Dates: start: 20130614, end: 20140212
  29. TIROSINT [Concomitant]
     Indication: HYPOTHYROIDISM
     Route: 002
     Dates: start: 20140213
  30. ROCALTROL [Concomitant]
     Indication: HYPOPARATHYROIDISM
     Route: 048
     Dates: start: 20130611, end: 20130613
  31. ROCALTROL [Concomitant]
     Indication: HYPOCALCAEMIA
     Route: 048
     Dates: start: 20130611, end: 20130613
  32. ROCALTROL [Concomitant]
     Indication: HYPOPARATHYROIDISM
     Route: 048
     Dates: start: 20130614
  33. ROCALTROL [Concomitant]
     Indication: HYPOCALCAEMIA
     Route: 048
     Dates: start: 20130614
  34. NORMAST [Concomitant]
     Indication: TREMOR
     Route: 048
     Dates: start: 20130710
  35. REMERON [Concomitant]
     Indication: DEPRESSION
     Route: 048
     Dates: start: 20140211
  36. MEGACE [Concomitant]
     Indication: DECREASED APPETITE
     Route: 048
     Dates: start: 20140211
  37. DIOSMECTAL [Concomitant]
     Indication: DIARRHOEA
     Route: 048
     Dates: start: 20140211
  38. LAROXYL [Concomitant]
     Indication: DEPRESSION
     Route: 048
     Dates: start: 20140307
  39. ANTRA [Concomitant]
     Indication: GASTRITIS PROPHYLAXIS
     Route: 042
     Dates: start: 20140307, end: 20140317
  40. SELEPARINA [Concomitant]
     Indication: THROMBOSIS PROPHYLAXIS
     Route: 058
     Dates: start: 20140307, end: 20140317
  41. KCL [Concomitant]
     Indication: HYPOKALAEMIA
     Route: 042
     Dates: start: 20140307, end: 20140309

REACTIONS (1)
  - General physical health deterioration [Recovered/Resolved]
